FAERS Safety Report 5126579-2 (Version None)
Quarter: 2006Q4

REPORT INFORMATION
  Report Type: 
  Country: None (occurrence: None)
  Receive Date: 20061012
  Receipt Date: 20061012
  Transmission Date: 20070319
  Serious: Yes (Life-Threatening)
  Sender: FDA-Public Use
  Company Number: None

PATIENT
  Sex: Female

DRUGS (1)
  1. IRON DEXTRAN [Suspect]
     Indication: ANAEMIA
     Dosage: 25 MG - TEST DOSE- ONCE IV
     Route: 042
     Dates: start: 20060719, end: 20060719

REACTIONS (1)
  - ANAPHYLACTIC REACTION [None]
